APPROVED DRUG PRODUCT: TRULANCE
Active Ingredient: PLECANATIDE
Strength: 3MG
Dosage Form/Route: TABLET;ORAL
Application: N208745 | Product #001
Applicant: SALIX PHARMACEUTICALS INC
Approved: Jan 19, 2017 | RLD: Yes | RS: Yes | Type: RX

PATENTS:
Patent 9610321 | Expires: Sep 15, 2031
Patent 9610321 | Expires: Sep 15, 2031
Patent 9919024 | Expires: Sep 15, 2031
Patent 12146003 | Expires: Jun 5, 2034
Patent 7041786 | Expires: Jan 30, 2028
Patent 9925231 | Expires: Sep 15, 2031
Patent 9616097 | Expires: Aug 20, 2032
Patent 10011637 | Expires: Jun 5, 2034
Patent 11142549 | Expires: Jun 5, 2034
Patent 11834521 | Expires: Jun 5, 2034
Patent 11319346 | Expires: Mar 1, 2032
Patent 9919024 | Expires: Sep 15, 2031